FAERS Safety Report 17407438 (Version 1)
Quarter: 2020Q1

REPORT INFORMATION
  Report Type: Spontaneous
  Country: US (occurrence: US)
  Receive Date: 20200212
  Receipt Date: 20200212
  Transmission Date: 20200409
  Serious: No
  Sender: FDA-Public Use
  Company Number: US-TEVA-2020-US-1182347

PATIENT
  Sex: Female

DRUGS (1)
  1. JUNEL FE 24 [Suspect]
     Active Substance: ETHINYL ESTRADIOL\NORETHINDRONE ACETATE
     Route: 065

REACTIONS (5)
  - Product dose omission [Unknown]
  - Polymenorrhoea [Not Recovered/Not Resolved]
  - Feeling abnormal [Unknown]
  - Product dose omission [Unknown]
  - Inappropriate schedule of product administration [Unknown]

NARRATIVE: CASE EVENT DATE: 20200126
